FAERS Safety Report 4623126-6 (Version None)
Quarter: 2005Q1

REPORT INFORMATION
  Report Type: 
  Country: None (occurrence: None)
  Receive Date: 20050328
  Receipt Date: 20050328
  Transmission Date: 20050727
  Serious: Yes (Life-Threatening, Hospitalization)
  Sender: FDA-Public Use
  Company Number: None

PATIENT
  Age: 70 Year
  Sex: Male
  Weight: 77.7 kg

DRUGS (10)
  1. OLANZAPINE [Suspect]
     Indication: AGITATION
     Dosage: 15 MG OVER 4 HOURS ORAL
     Route: 048
     Dates: start: 20050225, end: 20050226
  2. HALOPERIDOL [Suspect]
     Indication: AGITATION
     Dosage: 2 MG ONE TIME INTRAMUSCULAR
     Route: 030
     Dates: start: 20050226, end: 20050226
  3. PRAMIPEXOLE [Concomitant]
  4. SELEGILINE HCL [Concomitant]
  5. CARBIDOPA AND LEVODOPA [Concomitant]
  6. GLYBURIDE [Concomitant]
  7. LISINOPRIL [Concomitant]
  8. DILTIAZEM [Concomitant]
  9. DIGOXIN [Concomitant]
  10. GABAPENTIN [Concomitant]

REACTIONS (18)
  - ARRHYTHMIA [None]
  - BLOOD CREATINE PHOSPHOKINASE INCREASED [None]
  - BLOOD PRESSURE ABNORMAL [None]
  - DEHYDRATION [None]
  - FEELING ABNORMAL [None]
  - FLUID INTAKE REDUCED [None]
  - HYPERHIDROSIS [None]
  - HYPERPYREXIA [None]
  - LETHARGY [None]
  - LEUKOCYTOSIS [None]
  - MENTAL STATUS CHANGES [None]
  - MUSCLE RIGIDITY [None]
  - ORAL INTAKE REDUCED [None]
  - PAIN [None]
  - RENAL FAILURE ACUTE [None]
  - TACHYCARDIA [None]
  - TACHYPNOEA [None]
  - URINARY INCONTINENCE [None]
